FAERS Safety Report 10423453 (Version 2)
Quarter: 2014Q4

REPORT INFORMATION
  Report Type: Spontaneous
  Country: TH (occurrence: TH)
  Receive Date: 20140902
  Receipt Date: 20141211
  Transmission Date: 20150528
  Serious: Yes (Other)
  Sender: FDA-Public Use
  Company Number: TH-JNJFOC-20140826691

PATIENT
  Age: 74 Year
  Sex: Female
  Weight: 58.2 kg

DRUGS (6)
  1. FOLIC ACID. [Concomitant]
     Active Substance: FOLIC ACID
     Indication: PRODUCT USED FOR UNKNOWN INDICATION
     Route: 065
     Dates: start: 20140621
  2. ACETYLSALICYLIC ACID [Concomitant]
     Active Substance: ASPIRIN
     Indication: PRODUCT USED FOR UNKNOWN INDICATION
     Route: 065
     Dates: start: 20140621
  3. REMINYL [Suspect]
     Active Substance: GALANTAMINE
     Indication: VASCULAR DEMENTIA
     Route: 048
     Dates: start: 20140731, end: 20140802
  4. HALOPERIDOL. [Concomitant]
     Active Substance: HALOPERIDOL
     Indication: BEHAVIOURAL AND PSYCHIATRIC SYMPTOMS OF DEMENTIA
     Route: 065
     Dates: start: 20140621
  5. OMEPRAZOLE. [Concomitant]
     Active Substance: OMEPRAZOLE
     Indication: PRODUCT USED FOR UNKNOWN INDICATION
     Route: 065
     Dates: start: 20140621
  6. ENALAPRIL [Concomitant]
     Active Substance: ENALAPRIL
     Indication: PRODUCT USED FOR UNKNOWN INDICATION
     Route: 065
     Dates: start: 20140621

REACTIONS (8)
  - Rhinorrhoea [Recovered/Resolved]
  - Conjunctivitis [Recovered/Resolved with Sequelae]
  - Panophthalmitis [Recovered/Resolved with Sequelae]
  - Rash maculo-papular [Recovered/Resolved]
  - Lip swelling [Recovered/Resolved]
  - Muscle rigidity [Not Recovered/Not Resolved]
  - Dyspnoea [Recovered/Resolved]
  - Pruritus [Recovered/Resolved]

NARRATIVE: CASE EVENT DATE: 20140802
